FAERS Safety Report 14007010 (Version 1)
Quarter: 2017Q3

REPORT INFORMATION
  Report Type: Spontaneous
  Country: US (occurrence: US)
  Receive Date: 20170925
  Receipt Date: 20170925
  Transmission Date: 20171128
  Serious: No
  Sender: FDA-Public Use
  Company Number: US-PFIZER INC-2017403619

PATIENT
  Age: 10 Year
  Sex: Female
  Weight: 48 kg

DRUGS (16)
  1. GENOTROPIN [Suspect]
     Active Substance: SOMATROPIN
     Indication: BODY HEIGHT BELOW NORMAL
     Dosage: 0.15 MG, DAILY
     Route: 058
     Dates: start: 2014
  2. GENOTROPIN [Suspect]
     Active Substance: SOMATROPIN
     Indication: GROWTH HORMONE DEFICIENCY
     Dosage: 0.3 MG, DAILY
     Route: 058
     Dates: end: 20160316
  3. DELTASONE [Concomitant]
     Active Substance: PREDNISONE
     Dosage: 50 MG, 1X/DAY
     Route: 048
  4. GENOTROPIN [Suspect]
     Active Substance: SOMATROPIN
     Indication: BLOOD DISORDER
     Dosage: 0.2MG, DAILY
     Route: 058
     Dates: start: 20170829, end: 20170901
  5. DELTASONE [Concomitant]
     Active Substance: PREDNISONE
     Dosage: 1.5 DF, UNK
     Route: 048
     Dates: start: 20170323
  6. IRON/MULTIMINERALS/MULTIVITAMINS [Concomitant]
     Dosage: 1 DF, 1X/DAY
     Route: 048
  7. SYNTHROID [Concomitant]
     Active Substance: LEVOTHYROXINE SODIUM
     Dosage: 50 UG, 1X/DAY
     Route: 048
     Dates: start: 20170830, end: 20170901
  8. PREDNISONE. [Concomitant]
     Active Substance: PREDNISONE
     Indication: BLOOD DISORDER
     Dosage: 5 MG, DAILY
  9. PREDNISONE. [Concomitant]
     Active Substance: PREDNISONE
     Dosage: 10 MG, DAILY
     Route: 048
  10. PREDNISONE. [Concomitant]
     Active Substance: PREDNISONE
     Dosage: 30 MG, DAILY
  11. SYNTHROID [Concomitant]
     Active Substance: LEVOTHYROXINE SODIUM
     Dosage: 50 UG, 1X/DAY
     Route: 048
     Dates: start: 20170829
  12. DELTASONE [Concomitant]
     Active Substance: PREDNISONE
     Dosage: 5 MG, DAILY
     Route: 048
  13. ZANTAC [Concomitant]
     Active Substance: RANITIDINE HYDROCHLORIDE
     Dosage: 75 MG, 2X/DAY
     Route: 048
  14. TYLENOL [Concomitant]
     Active Substance: ACETAMINOPHEN
     Indication: PAIN
     Dosage: 80 MG, AS NEEDED (TWICE DAILY AS NEEDED)
     Route: 048
  15. GENOTROPIN [Suspect]
     Active Substance: SOMATROPIN
     Indication: ANAEMIA
     Dosage: 1.5 MG, 1X/DAY
     Route: 058
  16. DELTASONE [Concomitant]
     Active Substance: PREDNISONE
     Dosage: 10 MG, DAILY, (2 TABLETS)
     Route: 048

REACTIONS (5)
  - Drug dose omission [Unknown]
  - Insulin-like growth factor increased [Unknown]
  - Pyrexia [Unknown]
  - Fatigue [Unknown]
  - Tinnitus [Unknown]
